FAERS Safety Report 8905943 (Version 2)
Quarter: 2013Q1

REPORT INFORMATION
  Report Type: Spontaneous
  Country: US (occurrence: US)
  Receive Date: 20121109
  Receipt Date: 20130104
  Transmission Date: 20140127
  Serious: Yes (Hospitalization)
  Sender: FDA-Public Use
  Company Number: US-GLAXOSMITHKLINE-A0833509A

PATIENT
  Sex: Female

DRUGS (1)
  1. AVANDIA [Suspect]
     Indication: DIABETES MELLITUS
     Dosage: 4MG TWICE PER DAY
     Route: 048
     Dates: start: 200208, end: 200704

REACTIONS (4)
  - Myocardial infarction [Not Recovered/Not Resolved]
  - Acute coronary syndrome [Unknown]
  - Coronary artery bypass [Unknown]
  - Coronary artery disease [Unknown]
